FAERS Safety Report 15247903 (Version 1)
Quarter: 2018Q3

REPORT INFORMATION
  Report Type: Report from Study
  Country: FR (occurrence: FR)
  Receive Date: 20180807
  Receipt Date: 20180807
  Transmission Date: 20181010
  Serious: Yes (Other)
  Sender: FDA-Public Use
  Company Number: FR-TEVA-2018-FR-935628

PATIENT
  Age: 51 Year
  Sex: Male

DRUGS (9)
  1. IRINOTECAN [Suspect]
     Active Substance: IRINOTECAN
     Route: 041
     Dates: start: 20150521, end: 20150521
  2. 5?FU [Suspect]
     Active Substance: FLUOROURACIL
     Route: 040
     Dates: start: 20150521, end: 20150521
  3. 5?FU [Suspect]
     Active Substance: FLUOROURACIL
     Route: 041
     Dates: start: 20150521, end: 20150521
  4. IRINOTECAN [Suspect]
     Active Substance: IRINOTECAN
     Indication: COLORECTAL CANCER METASTATIC
     Route: 041
     Dates: start: 20150507, end: 20150507
  5. 5?FU [Suspect]
     Active Substance: FLUOROURACIL
     Route: 041
     Dates: start: 20150507, end: 20150507
  6. 5?FU [Suspect]
     Active Substance: FLUOROURACIL
     Indication: COLORECTAL CANCER METASTATIC
     Route: 040
     Dates: start: 20150507, end: 20150507
  7. LEUCOVORIN. [Suspect]
     Active Substance: LEUCOVORIN
     Route: 041
     Dates: start: 20150507, end: 20150507
  8. LEUCOVORIN. [Suspect]
     Active Substance: LEUCOVORIN
     Indication: COLORECTAL CANCER METASTATIC
     Route: 041
     Dates: start: 20150521, end: 20150521
  9. EMEND [Concomitant]
     Active Substance: APREPITANT
     Indication: PROPHYLAXIS
     Route: 065
     Dates: start: 20150507

REACTIONS (3)
  - Neutropenia [Recovered/Resolved]
  - Oedema peripheral [Unknown]
  - Nausea [Recovered/Resolved]

NARRATIVE: CASE EVENT DATE: 201505
